FAERS Safety Report 11284040 (Version 1)
Quarter: 2015Q3

REPORT INFORMATION
  Report Type: Spontaneous
  Country: TR (occurrence: TR)
  Receive Date: 20150720
  Receipt Date: 20150720
  Transmission Date: 20151125
  Serious: Yes (Other)
  Sender: FDA-Public Use
  Company Number: TR-ACTAVIS-2015-14751

PATIENT
  Age: 71 Year
  Sex: Male
  Weight: 86 kg

DRUGS (4)
  1. CA FOLINAT [Concomitant]
     Indication: PRODUCT USED FOR UNKNOWN INDICATION
     Dosage: UNK, UNKNOWN
     Route: 065
  2. CURATINOX [Suspect]
     Active Substance: OXALIPLATIN
     Indication: COLON CANCER
     Dosage: 170 MG, DAILY
     Route: 042
     Dates: start: 20150617
  3. 5-FU                               /00098801/ [Concomitant]
     Active Substance: FLUOROURACIL
     Indication: PRODUCT USED FOR UNKNOWN INDICATION
     Dosage: 800 UNK
     Route: 042
  4. FOLINIC ACID [Concomitant]
     Active Substance: LEUCOVORIN
     Indication: PRODUCT USED FOR UNKNOWN INDICATION
     Dosage: 800 UNK
     Route: 042

REACTIONS (5)
  - Bronchospasm [Recovering/Resolving]
  - Dyspnoea [Recovering/Resolving]
  - Tachypnoea [Recovering/Resolving]
  - Erythema [Recovering/Resolving]
  - Hypertension [Recovering/Resolving]

NARRATIVE: CASE EVENT DATE: 20150617
